FAERS Safety Report 5808661-7 (Version None)
Quarter: 2008Q3

REPORT INFORMATION
  Report Type: 
  Country: None (occurrence: None)
  Receive Date: 20080714
  Receipt Date: 20080703
  Transmission Date: 20090109
  Serious: Yes (Other)
  Sender: FDA-Public Use
  Company Number: ES-JNJFOC-20080701457

PATIENT
  Age: 38 Year
  Sex: Female

DRUGS (2)
  1. REMICADE [Suspect]
     Indication: COLITIS ULCERATIVE
     Dosage: UNSPECIFIED DURATION, BUT GREATER THAN A YEAR
     Route: 042
  2. 5-AMINOSALICYLIC ACID [Concomitant]

REACTIONS (1)
  - LYMPHOMA [None]
